FAERS Safety Report 24268751 (Version 1)
Quarter: 2024Q3

REPORT INFORMATION
  Report Type: Spontaneous
  Country: ES (occurrence: ES)
  Receive Date: 20240830
  Receipt Date: 20240830
  Transmission Date: 20241016
  Serious: Yes (Other)
  Sender: PFIZER
  Company Number: ES-PFIZER INC-202400245805

PATIENT
  Age: 60 Year
  Sex: Female

DRUGS (7)
  1. RIFABUTIN [Suspect]
     Active Substance: RIFABUTIN
     Dosage: 300 MG EVERY 24H
     Route: 048
  2. AZITHROMYCIN [Concomitant]
     Active Substance: AZITHROMYCIN
     Dosage: 500 MG EVERY 24 H
     Route: 048
  3. LINEZOLID [Concomitant]
     Active Substance: LINEZOLID
     Dosage: 600 MG EVERY 12 H
     Route: 048
  4. LINEZOLID [Concomitant]
     Active Substance: LINEZOLID
     Dosage: 600 MG, DAILY
  5. MOXIFLOXACIN [Concomitant]
     Active Substance: MOXIFLOXACIN
     Dosage: 400 MG EVERY 24H
     Route: 048
  6. BEDAQUILINE [Concomitant]
     Active Substance: BEDAQUILINE
     Dosage: 400 MG EVERY 24 H
  7. BEDAQUILINE [Concomitant]
     Active Substance: BEDAQUILINE
     Dosage: 200 MG THREE TIMES A WEEK

REACTIONS (3)
  - Hepatotoxicity [Unknown]
  - Hepatitis [Unknown]
  - Dyspepsia [Unknown]
